FAERS Safety Report 10247185 (Version 1)
Quarter: 2014Q1

REPORT INFORMATION
  Report Type: Spontaneous
  Country: US (occurrence: None)
  Receive Date: 20140306
  Receipt Date: 20140306
  Transmission Date: 20141002
  Serious: Yes (Other)
  Sender: FDA-Public Use
  Company Number: 163-21880-13043395

PATIENT
  Age: 28 Year
  Sex: Female

DRUGS (5)
  1. REVLIMID (LENALIDOMIDE) (10 MILLIGRAM, CAPSULES) [Suspect]
     Indication: HODGKIN^S DISEASE
     Dosage: 10 MG, 28 IN 28 D, PO
     Route: 048
     Dates: start: 20130214, end: 20130426
  2. BACTRIM DS (BACTRIM) [Concomitant]
  3. ACYCLOVIR (ACICLOVIR) [Concomitant]
  4. VORICONAZOLE (VORICONAZOLE) [Concomitant]
  5. PREDNISONE (PREDNISONE) [Concomitant]

REACTIONS (1)
  - Neutropenia [None]
